FAERS Safety Report 6839567-2 (Version None)
Quarter: 2010Q3

REPORT INFORMATION
  Report Type: 
  Country: None (occurrence: None)
  Receive Date: 20100714
  Receipt Date: 20100423
  Transmission Date: 20110219
  Serious: Yes (Other)
  Sender: FDA-Public Use
  Company Number: A0847586A

PATIENT
  Age: 62 Year
  Sex: Female

DRUGS (8)
  1. FLOVENT [Suspect]
     Indication: ASTHMA
     Dosage: 2PUFF PER DAY
     Route: 055
     Dates: start: 20070101
  2. PROVENTIL [Concomitant]
  3. LASIX [Concomitant]
  4. VITAMIN C [Concomitant]
  5. CALCIUM + D [Concomitant]
  6. FISH OIL [Concomitant]
  7. OSTEOBIFLEX [Concomitant]
  8. PREDNISONE [Concomitant]

REACTIONS (5)
  - ASTHMA [None]
  - COUGH [None]
  - DYSPNOEA [None]
  - PRODUCT QUALITY ISSUE [None]
  - SINUSITIS [None]
